FAERS Safety Report 7577592-7 (Version None)
Quarter: 2011Q2

REPORT INFORMATION
  Report Type: 
  Country: None (occurrence: None)
  Receive Date: 20110628
  Receipt Date: 20100811
  Transmission Date: 20111010
  Serious: No
  Sender: FDA-Public Use
  Company Number: US-KINGPHARMUSA00001-K201001017

PATIENT

DRUGS (1)
  1. BICILLIN L-A [Suspect]
     Dosage: UNK
     Route: 030

REACTIONS (1)
  - INJECTION SITE PAIN [None]
